FAERS Safety Report 12452847 (Version 1)
Quarter: 2016Q2

REPORT INFORMATION
  Report Type: Spontaneous
  Country: GB (occurrence: GB)
  Receive Date: 20160609
  Receipt Date: 20160609
  Transmission Date: 20160815
  Serious: Yes (Other)
  Sender: FDA-Public Use
  Company Number: GB-TEVA-665888ACC

PATIENT
  Age: 65 Year
  Sex: Female
  Weight: 68.03 kg

DRUGS (2)
  1. TEVA UK NAPROXEN [Suspect]
     Active Substance: NAPROXEN
     Indication: JOINT SWELLING
     Route: 048
     Dates: start: 20160513, end: 20160517
  2. IBUPROFEN. [Concomitant]
     Active Substance: IBUPROFEN

REACTIONS (5)
  - Abdominal pain upper [Recovering/Resolving]
  - Dyspepsia [Recovered/Resolved]
  - Confusional state [Recovered/Resolved]
  - Abdominal distension [Recovering/Resolving]
  - Head discomfort [Recovered/Resolved]

NARRATIVE: CASE EVENT DATE: 20160514
